FAERS Safety Report 4875937-X (Version None)
Quarter: 2006Q1

REPORT INFORMATION
  Report Type: 
  Country: None (occurrence: None)
  Receive Date: 20060106
  Receipt Date: 20051230
  Transmission Date: 20060701
  Serious: Yes (Other)
  Sender: FDA-Public Use
  Company Number: USA-2005-0020842

PATIENT
  Sex: Female

DRUGS (24)
  1. OXYCONTIN [Suspect]
     Indication: PAIN
     Dosage: 10 , BID,
  2. ZOLOFT [Concomitant]
  3. ZYRTEC [Concomitant]
  4. KCL TAB [Concomitant]
  5. PREDNISONE [Concomitant]
  6. DEMADEX [Concomitant]
  7. LITHOBID [Concomitant]
  8. RESTORIL [Concomitant]
  9. METROGEL [Concomitant]
  10. FLOVENT [Concomitant]
  11. SEREVENT [Concomitant]
  12. SEROQUEL [Concomitant]
  13. PREVACID [Concomitant]
  14. ZOLOFT [Concomitant]
  15. MYSOLINE [Concomitant]
  16. SINGULAIRE (MONTELUKAST SODIUM) [Concomitant]
  17. LIPITOR [Concomitant]
  18. MIACALCIN [Concomitant]
  19. GUAIFENESIN [Concomitant]
  20. ALBUTEROL [Concomitant]
  21. ADVAIR DISKUS (FLUTICASONE PROPIONATE) [Concomitant]
  22. LACTULOSE [Concomitant]
  23. TEMAZEPAM [Concomitant]
  24. DILADEX [Concomitant]

REACTIONS (34)
  - ABDOMINAL DISTENSION [None]
  - ANHEDONIA [None]
  - ANXIETY [None]
  - BIPOLAR DISORDER [None]
  - CHEST DISCOMFORT [None]
  - CHRONIC SINUSITIS [None]
  - CONSTIPATION [None]
  - DEAFNESS [None]
  - DELUSIONAL DISORDER, UNSPECIFIED TYPE [None]
  - DEPRESSED MOOD [None]
  - DEPRESSION [None]
  - DISTURBANCE IN ATTENTION [None]
  - DRUG DEPENDENCE [None]
  - DRUG TOLERANCE [None]
  - DRUG WITHDRAWAL SYNDROME [None]
  - DYSPEPSIA [None]
  - DYSPHAGIA [None]
  - DYSPNOEA [None]
  - DYSPNOEA EXERTIONAL [None]
  - EAR PAIN [None]
  - GASTROOESOPHAGEAL REFLUX DISEASE [None]
  - INCREASED UPPER AIRWAY SECRETION [None]
  - MENTAL DISORDER [None]
  - MYRINGOPLASTY [None]
  - NIGHTMARE [None]
  - OBSESSIVE-COMPULSIVE DISORDER [None]
  - OEDEMA PERIPHERAL [None]
  - OTITIS MEDIA CHRONIC [None]
  - PAIN [None]
  - PARANOIA [None]
  - PRODUCTIVE COUGH [None]
  - SLEEP DISORDER [None]
  - TYMPANIC MEMBRANE PERFORATION [None]
  - UPPER RESPIRATORY TRACT INFECTION [None]
